FAERS Safety Report 7288563-2 (Version None)
Quarter: 2011Q1

REPORT INFORMATION
  Report Type: 
  Country: None (occurrence: None)
  Receive Date: 20110211
  Receipt Date: 20110203
  Transmission Date: 20110831
  Serious: Yes (Death)
  Sender: FDA-Public Use
  Company Number: JP-SANOFI-AVENTIS-2010SA019962

PATIENT
  Age: 64 Year
  Sex: Female

DRUGS (9)
  1. ANTIVIRALS FOR SYSTEMIC USE [Concomitant]
     Indication: HEPATITIS B
     Route: 048
     Dates: start: 20070901, end: 20090804
  2. CYCLOPHOSPHAMIDE [Concomitant]
     Indication: SPLENIC MARGINAL ZONE LYMPHOMA STAGE IV
     Route: 065
     Dates: start: 20081201, end: 20081201
  3. VFEND [Concomitant]
     Indication: SINUSITIS
     Route: 048
     Dates: start: 20090604, end: 20090804
  4. RITUXIMAB [Concomitant]
     Indication: SPLENIC MARGINAL ZONE LYMPHOMA STAGE IV
     Route: 041
     Dates: start: 20081201, end: 20081201
  5. PREDNISOLONE [Concomitant]
     Indication: SPLENIC MARGINAL ZONE LYMPHOMA STAGE IV
     Route: 065
     Dates: start: 20081201, end: 20081201
  6. FLUDARA [Concomitant]
     Indication: SPLENIC MARGINAL ZONE LYMPHOMA STAGE IV
     Route: 042
     Dates: start: 20081201, end: 20081201
  7. FLUDARABINE PHOSPHATE [Suspect]
     Indication: SPLENIC MARGINAL ZONE LYMPHOMA STAGE IV
     Route: 048
     Dates: start: 20090630, end: 20090701
  8. DOXORUBICIN HCL [Concomitant]
     Indication: SPLENIC MARGINAL ZONE LYMPHOMA STAGE IV
     Route: 042
     Dates: start: 20081201, end: 20081201
  9. VINCRISTINE SULFATE [Concomitant]
     Indication: SPLENIC MARGINAL ZONE LYMPHOMA STAGE IV
     Route: 065
     Dates: start: 20081201, end: 20081201

REACTIONS (3)
  - VARICELLA [None]
  - DEATH [None]
  - ASPARTATE AMINOTRANSFERASE INCREASED [None]
